FAERS Safety Report 5236806-9 (Version None)
Quarter: 2007Q1

REPORT INFORMATION
  Report Type: 
  Country: None (occurrence: None)
  Receive Date: 20061208
  Receipt Date: 20050725
  Transmission Date: 20070707
  Serious: Yes (Other)
  Sender: FDA-Public Use
  Company Number: 2005UW11005

PATIENT
  Age: 79 Year
  Sex: Female
  Weight: 86.182 kg

DRUGS (5)
  1. CRESTOR [Suspect]
     Indication: BLOOD CHOLESTEROL INCREASED
     Dosage: 5 MG PO
     Route: 048
  2. COUMADIN [Concomitant]
  3. SINGULAIR [Concomitant]
  4. DILTIAZEM [Concomitant]
  5. ENALAPRIL MALEATE [Concomitant]

REACTIONS (3)
  - GOUT [None]
  - PAIN [None]
  - RHINORRHOEA [None]
